FAERS Safety Report 25242115 (Version 1)
Quarter: 2025Q2

REPORT INFORMATION
  Report Type: Spontaneous
  Country: BE (occurrence: BE)
  Receive Date: 20250426
  Receipt Date: 20250426
  Transmission Date: 20250716
  Serious: Yes (Hospitalization, Other)
  Sender: AUROBINDO
  Company Number: BE-Accord-359858

PATIENT
  Age: 74 Year
  Sex: Female

DRUGS (1)
  1. RIVAROXABAN [Suspect]
     Active Substance: RIVAROXABAN
     Indication: Pulmonary embolism
     Route: 048

REACTIONS (4)
  - Ischaemic stroke [Recovered/Resolved]
  - Endocarditis noninfective [Recovered/Resolved]
  - Thrombosis [Recovered/Resolved]
  - Treatment failure [Unknown]
